FAERS Safety Report 6578738-X (Version None)
Quarter: 2010Q1

REPORT INFORMATION
  Report Type: 
  Country: None (occurrence: None)
  Receive Date: 20100202
  Receipt Date: 20100119
  Transmission Date: 20100710
  Serious: Yes (Death)
  Sender: FDA-Public Use
  Company Number: 008609

PATIENT
  Age: 48 Year
  Sex: Male

DRUGS (5)
  1. CILOSTAZOL [Suspect]
  2. PREDNISOLONE [Concomitant]
  3. CYCLOSPORINE [Concomitant]
  4. MYCOPHENOLATE MOFETIL [Concomitant]
  5. BASILIXIMAB (GENETICAL RECOMBINATION) (BASILIXIMAB (GENETICAL RECOMBIN [Concomitant]

REACTIONS (10)
  - BLOOD PRESSURE DECREASED [None]
  - COAGULOPATHY [None]
  - COMPLICATIONS OF TRANSPLANTED KIDNEY [None]
  - DISSEMINATED INTRAVASCULAR COAGULATION [None]
  - GASTROINTESTINAL OEDEMA [None]
  - OPERATIVE HAEMORRHAGE [None]
  - POST PROCEDURAL HAEMORRHAGE [None]
  - RENAL ARTERIOSCLEROSIS [None]
  - RENAL TRANSPLANT [None]
  - RENAL TUBULAR NECROSIS [None]
